FAERS Safety Report 13035519 (Version 1)
Quarter: 2016Q4

REPORT INFORMATION
  Report Type: Spontaneous
  Country: US (occurrence: US)
  Receive Date: 20161216
  Receipt Date: 20161216
  Transmission Date: 20170207
  Serious: No
  Sender: FDA-Public Use
  Company Number: US-ASTELLAS-2016US011578

PATIENT
  Sex: Female

DRUGS (1)
  1. TARCEVA [Suspect]
     Active Substance: ERLOTINIB HYDROCHLORIDE
     Indication: LUNG CARCINOMA CELL TYPE UNSPECIFIED STAGE 0
     Route: 048
     Dates: start: 20160225, end: 201603

REACTIONS (8)
  - Nasal oedema [Recovering/Resolving]
  - Nasal disorder [Recovering/Resolving]
  - Skin discolouration [Recovering/Resolving]
  - Skin burning sensation [Recovering/Resolving]
  - Skin mass [Recovering/Resolving]
  - Pruritus [Recovering/Resolving]
  - Rhinalgia [Recovering/Resolving]
  - Rash [Recovering/Resolving]
